FAERS Safety Report 10614307 (Version 3)
Quarter: 2017Q1

REPORT INFORMATION
  Report Type: Spontaneous
  Country: US (occurrence: US)
  Receive Date: 20141128
  Receipt Date: 20170221
  Transmission Date: 20170428
  Serious: Yes (Other)
  Sender: FDA-Public Use
  Company Number: PHEH2014US023079

PATIENT
  Age: 42 Year
  Sex: Female

DRUGS (3)
  1. EXJADE [Suspect]
     Active Substance: DEFERASIROX
     Dosage: UNK
     Route: 065
     Dates: end: 2009
  2. LENALIDOMIDE [Concomitant]
     Active Substance: LENALIDOMIDE
     Indication: PRODUCT USED FOR UNKNOWN INDICATION
     Dosage: UNK
     Route: 065
  3. EXJADE [Suspect]
     Active Substance: DEFERASIROX
     Indication: MYELODYSPLASTIC SYNDROME
     Dosage: UNK
     Route: 065
     Dates: start: 200602, end: 200603

REACTIONS (11)
  - Blood creatinine increased [Unknown]
  - Drug intolerance [Unknown]
  - Swelling [Unknown]
  - Renal disorder [Unknown]
  - Blood lactate dehydrogenase increased [Unknown]
  - Thrombosis [Unknown]
  - Subclavian vein thrombosis [Unknown]
  - Iron overload [Unknown]
  - Marrow hyperplasia [Unknown]
  - Rash [Recovered/Resolved]
  - Pyrexia [Unknown]

NARRATIVE: CASE EVENT DATE: 200603
